FAERS Safety Report 13897217 (Version 1)
Quarter: 2017Q3

REPORT INFORMATION
  Report Type: Spontaneous
  Country: BR (occurrence: BR)
  Receive Date: 20170823
  Receipt Date: 20170823
  Transmission Date: 20171127
  Serious: Yes (Other)
  Sender: FDA-Public Use
  Company Number: BR-GLAXOSMITHKLINE-BR2017GSK129441

PATIENT
  Age: 5 Year
  Sex: Female
  Weight: 20 kg

DRUGS (5)
  1. CLENIL [Concomitant]
     Active Substance: BECLOMETHASONE DIPROPIONATE
     Indication: PRODUCT USED FOR UNKNOWN INDICATION
     Dosage: UNK
  2. PREDSIM [Concomitant]
     Active Substance: PREDNISOLONE
     Indication: ALLERGIC COUGH
     Dosage: 7 ML, 1D
     Route: 048
  3. CLAVULIN BD [Suspect]
     Active Substance: AMOXICILLIN\CLAVULANATE POTASSIUM
     Indication: BRONCHIOLITIS
     Dosage: 6.5 ML, BID
     Dates: start: 20170817
  4. AEROLIN [Suspect]
     Active Substance: ALBUTEROL
     Indication: ASTHMA
     Dosage: UNK
  5. AEROLIN [Suspect]
     Active Substance: ALBUTEROL
     Indication: BRONCHITIS

REACTIONS (4)
  - Pallor [Unknown]
  - Fatigue [Recovered/Resolved]
  - Hypothermia [Recovered/Resolved]
  - Delirium [Recovered/Resolved]

NARRATIVE: CASE EVENT DATE: 20170818
